FAERS Safety Report 11841472 (Version 1)
Quarter: 2015Q4

REPORT INFORMATION
  Report Type: Spontaneous
  Country: FR (occurrence: FR)
  Receive Date: 20151216
  Receipt Date: 20151216
  Transmission Date: 20160305
  Serious: Yes (Death)
  Sender: FDA-Public Use
  Company Number: FR-SA-2015SA211907

PATIENT
  Age: 92 Year
  Sex: Female

DRUGS (10)
  1. MOVICOL [Concomitant]
     Active Substance: POLYETHYLENE GLYCOL 3350\POTASSIUM CHLORIDE\SODIUM BICARBONATE\SODIUM CHLORIDE
  2. BISOPROLOL [Concomitant]
     Active Substance: BISOPROLOL
  3. HEMIGOXINE [Concomitant]
     Active Substance: DIGOXIN
  4. ACUPAN [Concomitant]
     Active Substance: NEFOPAM HYDROCHLORIDE
  5. OXYCODONE [Concomitant]
     Active Substance: OXYCODONE
  6. LASILIX [Concomitant]
     Active Substance: FUROSEMIDE
  7. LOVENOX [Suspect]
     Active Substance: ENOXAPARIN SODIUM
     Indication: ATRIAL FIBRILLATION
     Route: 058
  8. LEVOTHYROX [Concomitant]
     Active Substance: LEVOTHYROXINE
  9. STILNOX [Concomitant]
     Active Substance: ZOLPIDEM TARTRATE
  10. DOLIPRANE [Concomitant]
     Active Substance: ACETAMINOPHEN

REACTIONS (2)
  - Shock haemorrhagic [Fatal]
  - Spontaneous haematoma [Fatal]

NARRATIVE: CASE EVENT DATE: 20150921
